FAERS Safety Report 8832014 (Version 1)
Quarter: 2012Q4

REPORT INFORMATION
  Report Type: Report from Study
  Country: CA (occurrence: CA)
  Receive Date: 20121009
  Receipt Date: 20121009
  Transmission Date: 20130627
  Serious: Yes (Other)
  Sender: FDA-Public Use
  Company Number: CA-JNJFOC-20120912917

PATIENT
  Sex: Male
  Weight: 146 kg

DRUGS (11)
  1. REMICADE [Suspect]
     Indication: CROHN^S DISEASE
     Route: 042
     Dates: start: 20120803
  2. REMICADE [Suspect]
     Indication: CROHN^S DISEASE
     Route: 042
     Dates: start: 2004
  3. TWYNSTA [Concomitant]
     Route: 065
  4. HIGH BLOOD PRESSURE PILL, NOS [Concomitant]
     Indication: HYPERTENSION
     Route: 065
  5. AZATHIOPRINE [Concomitant]
     Route: 065
  6. TERAZOSIN [Concomitant]
     Route: 065
  7. PANTOLOC [Concomitant]
     Route: 065
  8. CRESTOR [Concomitant]
     Route: 065
  9. CHLORTHALIDONE [Concomitant]
     Route: 065
  10. IRON PILLS [Concomitant]
     Route: 065
  11. BABY ASA [Concomitant]
     Route: 065

REACTIONS (1)
  - Cerebrovascular accident [Recovered/Resolved]
